FAERS Safety Report 23033272 (Version 1)
Quarter: 2023Q4

REPORT INFORMATION
  Report Type: Spontaneous
  Country: US (occurrence: US)
  Receive Date: 20231005
  Receipt Date: 20231005
  Transmission Date: 20240110
  Serious: Yes (Other)
  Sender: FDA-Public Use
  Company Number: US-drreddys-SPO/USA/23/0178638

PATIENT
  Age: 19 Year

DRUGS (1)
  1. ACCUTANE [Suspect]
     Active Substance: ISOTRETINOIN
     Indication: Acne
     Dosage: RMA ISSUE DATE:25 AUGUST 2023 04:45:09 PM

REACTIONS (4)
  - Suicidal ideation [Unknown]
  - Arthralgia [Unknown]
  - Dry skin [Unknown]
  - Visual impairment [Unknown]
